FAERS Safety Report 6454159-5 (Version None)
Quarter: 2009Q4

REPORT INFORMATION
  Report Type: 
  Country: None (occurrence: None)
  Receive Date: 20091124
  Receipt Date: 20091112
  Transmission Date: 20100525
  Serious: Yes (Hospitalization)
  Sender: FDA-Public Use
  Company Number: FR-WYE-H12204209

PATIENT
  Sex: Female

DRUGS (11)
  1. INIPOMP [Suspect]
     Route: 048
     Dates: end: 20091002
  2. TEGRETOL [Suspect]
     Indication: FACIAL NEURALGIA
     Route: 048
     Dates: end: 20090929
  3. TEGRETOL [Suspect]
     Dosage: UNKNOWN
     Dates: start: 20091002
  4. LYRICA [Concomitant]
     Route: 048
  5. SPASFON [Concomitant]
     Dosage: UNKNOWN
  6. SOTALOL HCL [Concomitant]
  7. AMLODIPINE [Concomitant]
  8. ADVIL [Concomitant]
     Dosage: 200 MG, UNSPECIFIED FREQUENCY
  9. STILNOX [Concomitant]
     Dosage: UNKNOWN
  10. COAPROVEL [Suspect]
     Indication: HYPERTENSION
     Dosage: 150 MG/ 12.5 MG DAILY
     Route: 048
     Dates: end: 20091001
  11. RIVOTRIL [Concomitant]
     Dosage: 5 GTT, 3 IN 1 DAY

REACTIONS (4)
  - GAIT DISTURBANCE [None]
  - HYPONATRAEMIA [None]
  - NAUSEA [None]
  - VERTIGO [None]
